FAERS Safety Report 7044452-X (Version None)
Quarter: 2010Q4

REPORT INFORMATION
  Report Type: 
  Country: None (occurrence: None)
  Receive Date: 20101014
  Receipt Date: 20101004
  Transmission Date: 20110411
  Serious: Yes (Hospitalization)
  Sender: FDA-Public Use
  Company Number: US-US-EMD SERONO, INC.-233429K09USA

PATIENT
  Sex: Female
  Weight: 66 kg

DRUGS (3)
  1. REBIF [Suspect]
     Indication: OFF LABEL USE
     Route: 058
     Dates: start: 20090318, end: 20100801
  2. IBUPROFEN [Concomitant]
     Indication: HEADACHE
     Route: 065
  3. ZANTAC [Concomitant]
     Indication: ABDOMINAL PAIN UPPER
     Route: 065

REACTIONS (1)
  - MULTIPLE SCLEROSIS RELAPSE [None]
